FAERS Safety Report 4771622-3 (Version None)
Quarter: 2005Q3

REPORT INFORMATION
  Report Type: 
  Country: None (occurrence: None)
  Receive Date: 20050916
  Receipt Date: 20050907
  Transmission Date: 20060218
  Serious: Yes (Other)
  Sender: FDA-Public Use
  Company Number: DE-JNJFOC-20050706049

PATIENT
  Age: 76 Year
  Sex: Female

DRUGS (6)
  1. REMICADE [Suspect]
     Indication: RHEUMATOID ARTHRITIS
     Route: 042
  2. METHOTREXATE [Concomitant]
     Indication: ARTHRITIS
     Route: 065
  3. DECORTIN [Concomitant]
     Indication: ARTHRITIS
     Route: 065
  4. OSSEFORTIN FORTE [Concomitant]
     Route: 065
  5. OSSEFORTIN FORTE [Concomitant]
     Indication: OSTEOPOROSIS
     Route: 065
  6. PANTOZOL [Concomitant]
     Indication: GASTROINTESTINAL DISORDER THERAPY
     Route: 065

REACTIONS (1)
  - PUSTULAR PSORIASIS [None]
